FAERS Safety Report 5152185-X (Version None)
Quarter: 2006Q4

REPORT INFORMATION
  Report Type: 
  Country: None (occurrence: None)
  Receive Date: 20061116
  Receipt Date: 20061106
  Transmission Date: 20070319
  Serious: Yes (Other)
  Sender: FDA-Public Use
  Company Number: JP-GLAXOSMITHKLINE-B0446230A

PATIENT
  Age: 62 Year
  Sex: Male

DRUGS (10)
  1. DIGOXIN [Suspect]
     Dosage: .25MG PER DAY
     Route: 065
  2. FLUCONAZOLE [Concomitant]
     Route: 042
  3. ITRACONAZOLE [Concomitant]
     Route: 065
  4. LEVOTHYROXINE SODIUM [Concomitant]
     Route: 065
  5. WARFARIN SODIUM [Concomitant]
     Route: 065
  6. CANDESARTAN CILEXETIL [Concomitant]
     Route: 065
  7. ISOSORBIDE DINITRATE [Concomitant]
     Route: 065
  8. FUROSEMIDE [Concomitant]
     Route: 065
  9. LANSOPRAZOLE [Concomitant]
     Route: 065
  10. FERROUS CITRATE [Concomitant]
     Route: 065

REACTIONS (17)
  - ANOSMIA [None]
  - ATRIOVENTRICULAR BLOCK [None]
  - DYSGEUSIA [None]
  - ELECTROCARDIOGRAM PQ INTERVAL PROLONGED [None]
  - ELECTROCARDIOGRAM QT SHORTENED [None]
  - HYPOGEUSIA [None]
  - HYPOSMIA [None]
  - OPTIC NERVE DISORDER [None]
  - OPTIC NEURITIS RETROBULBAR [None]
  - OVERDOSE [None]
  - PAROSMIA [None]
  - PHOTOPHOBIA [None]
  - RHINORRHOEA [None]
  - SINUSITIS [None]
  - THERAPEUTIC AGENT TOXICITY [None]
  - VENTRICULAR HYPERTROPHY [None]
  - VISUAL ACUITY REDUCED [None]
